FAERS Safety Report 15098413 (Version 1)
Quarter: 2018Q3

REPORT INFORMATION
  Report Type: Report from Study
  Country: BR (occurrence: BR)
  Receive Date: 20180702
  Receipt Date: 20180702
  Transmission Date: 20181010
  Serious: Yes (Death, Other)
  Sender: FDA-Public Use
  Company Number: PHHY2018BR035098

PATIENT
  Sex: Female
  Weight: 67 kg

DRUGS (1)
  1. ACLASTA [Suspect]
     Active Substance: ZOLEDRONIC ACID
     Indication: OSTEOPOROSIS
     Dosage: 1 DF, Q12MO (1 FLASK)
     Route: 042
     Dates: start: 201208

REACTIONS (3)
  - Dementia Alzheimer^s type [Unknown]
  - Hypertension [Unknown]
  - Diverticulitis [Fatal]
